FAERS Safety Report 8392490-7 (Version None)
Quarter: 2012Q2

REPORT INFORMATION
  Report Type: 
  Country: None (occurrence: None)
  Receive Date: 20120529
  Receipt Date: 20120528
  Transmission Date: 20120825
  Serious: No
  Sender: FDA-Public Use
  Company Number: US-PFIZER INC-2012128123

PATIENT
  Sex: Female

DRUGS (1)
  1. EFFEXOR [Suspect]
     Dosage: UNK

REACTIONS (3)
  - CRYING [None]
  - FEELING ABNORMAL [None]
  - DRUG INEFFECTIVE [None]
